FAERS Safety Report 7225718-7 (Version None)
Quarter: 2011Q1

REPORT INFORMATION
  Report Type: 
  Country: None (occurrence: None)
  Receive Date: 20110110
  Receipt Date: 20110110
  Transmission Date: 20110831
  Serious: Yes (Other)
  Sender: FDA-Public Use
  Company Number: None

PATIENT
  Age: 63 Year
  Sex: Female
  Weight: 61.2356 kg

DRUGS (1)
  1. CREST PRO-HEALTH TOOTHPASTE PROCTER + GAMBLE [Suspect]
     Indication: DENTAL CARE
     Dosage: 1-3 TIMES DAILY

REACTIONS (1)
  - TOOTH DEPOSIT [None]
